FAERS Safety Report 8815756 (Version 1)
Quarter: 2012Q4

REPORT INFORMATION
  Report Type: 
  Country: US (occurrence: US)
  Receive Date: 20120928
  Receipt Date: 20120928
  Transmission Date: 20130627
  Serious: No
  Sender: FDA-Public Use
  Company Number: US-ASTRAZENECA-2012SE71747

PATIENT
  Age: 61 Year
  Sex: Male
  Weight: 80.7 kg

DRUGS (6)
  1. SYMBICORT [Suspect]
     Indication: CHRONIC OBSTRUCTIVE PULMONARY DISEASE
     Dosage: 160/4.5 MCG, 2 PUFFS BID
     Route: 055
  2. SPIRIVA [Concomitant]
  3. ALBUTEROL [Concomitant]
  4. CLARITAN [Concomitant]
  5. WARFARIN [Concomitant]
  6. TRAMADOL [Concomitant]

REACTIONS (2)
  - Dyspnoea [Unknown]
  - Intentional drug misuse [Unknown]
